FAERS Safety Report 4525893-9 (Version None)
Quarter: 2004Q4

REPORT INFORMATION
  Report Type: 
  Country: None (occurrence: None)
  Receive Date: 20041213
  Receipt Date: 20041207
  Transmission Date: 20050328
  Serious: Yes (Other)
  Sender: FDA-Public Use
  Company Number: PHBS2004RU16547

PATIENT
  Age: 30 Year
  Sex: Female

DRUGS (2)
  1. PARLODEL [Suspect]
     Indication: PROLACTINOMA
     Dosage: UNK, UNK
     Route: 048
     Dates: start: 20040101, end: 20040101
  2. PARLODEL [Suspect]
     Dosage: 0.625 MG/DAY
     Route: 048

REACTIONS (4)
  - ALOPECIA [None]
  - ASTHENIA [None]
  - DEPRESSION [None]
  - SYNCOPE [None]
